FAERS Safety Report 25050865 (Version 1)
Quarter: 2025Q1

REPORT INFORMATION
  Report Type: Spontaneous
  Country: US (occurrence: US)
  Receive Date: 20250307
  Receipt Date: 20250307
  Transmission Date: 20250409
  Serious: No
  Sender: TEVA
  Company Number: US-TEVA-VS-3304548

PATIENT
  Age: 78 Year
  Sex: Male

DRUGS (2)
  1. CARBIDOPA AND LEVODOPA [Suspect]
     Active Substance: CARBIDOPA\LEVODOPA
     Indication: Parkinson^s disease
     Route: 048
     Dates: start: 2025
  2. CARBIDOPA AND LEVODOPA [Suspect]
     Active Substance: CARBIDOPA\LEVODOPA
     Indication: Parkinson^s disease
     Route: 048
     Dates: start: 2015

REACTIONS (4)
  - Confusional state [Recovered/Resolved]
  - Product colour issue [Unknown]
  - Product availability issue [Unknown]
  - Product physical issue [Unknown]

NARRATIVE: CASE EVENT DATE: 20250203
